FAERS Safety Report 4553289-2 (Version None)
Quarter: 2005Q1

REPORT INFORMATION
  Report Type: 
  Country: None (occurrence: None)
  Receive Date: 20050113
  Receipt Date: 20050104
  Transmission Date: 20050727
  Serious: Yes (Death, Hospitalization)
  Sender: FDA-Public Use
  Company Number: 2005-01-0063

PATIENT
  Age: 85 Year
  Sex: Female

DRUGS (7)
  1. AERIUS (DESLORATADINE)   'LIKE CLARINEX' [Suspect]
     Indication: RHINITIS ALLERGIC
     Dosage: ORAL
     Route: 048
     Dates: start: 20030201, end: 20030522
  2. CLARITIN [Suspect]
     Indication: RHINITIS ALLERGIC
     Dosage: 1 TABLET QD ORAL
     Route: 048
     Dates: start: 20030522, end: 20030622
  3. KALEORID TABLETS [Suspect]
     Indication: DRUG USE FOR UNKNOWN INDICATION
     Dosage: 600 MG BIW ORAL
     Route: 048
     Dates: start: 20030516, end: 20030622
  4. LASIX [Suspect]
     Indication: ANGINA PECTORIS
     Dosage: 40 MG QD ORAL
     Route: 048
     Dates: start: 20030516, end: 20030622
  5. MUCOMYST [Suspect]
     Indication: RESPIRATORY DISORDER
     Dosage: TID ORAL
     Route: 048
     Dates: start: 20030527, end: 20030622
  6. VASTAREL TABLETS [Suspect]
     Indication: ANGINA PECTORIS
     Dosage: 70 MG QD ORAL
     Route: 048
     Dates: start: 20030201, end: 20030626
  7. RABEPRAZOLE SODIUM [Suspect]
     Indication: GASTRITIS
     Dosage: 10MG QD
     Dates: start: 20030201, end: 20030517

REACTIONS (8)
  - CANDIDIASIS [None]
  - CARDIAC FAILURE [None]
  - HYPOXIA [None]
  - PNEUMONIA [None]
  - RESPIRATORY DISORDER [None]
  - STEVENS-JOHNSON SYNDROME [None]
  - TACHYPNOEA [None]
  - TOXIC EPIDERMAL NECROLYSIS [None]
